FAERS Safety Report 5033153-5 (Version None)
Quarter: 2006Q2

REPORT INFORMATION
  Report Type: 
  Country: None (occurrence: None)
  Receive Date: 20060622
  Receipt Date: 20060612
  Transmission Date: 20061013
  Serious: Yes (Hospitalization)
  Sender: FDA-Public Use
  Company Number: PHEH2006US07675

PATIENT
  Sex: Female

DRUGS (1)
  1. GLEEVEC [Suspect]
     Indication: GASTROINTESTINAL STROMAL TUMOUR
     Route: 048
     Dates: start: 20010101

REACTIONS (4)
  - BLOOD CREATININE INCREASED [None]
  - RENAL FAILURE [None]
  - SPLENECTOMY [None]
  - SPLENIC RUPTURE [None]
